FAERS Safety Report 5672203-X (Version None)
Quarter: 2008Q1

REPORT INFORMATION
  Report Type: 
  Country: None (occurrence: None)
  Receive Date: 20080319
  Receipt Date: 20080313
  Transmission Date: 20080703
  Serious: Yes (Hospitalization, Other)
  Sender: FDA-Public Use
  Company Number: AU-AVENTIS-200812369GDDC

PATIENT
  Age: 78 Year
  Sex: Female

DRUGS (9)
  1. LANTUS [Suspect]
     Route: 058
     Dates: start: 20070101
  2. AUTOPEN INSULIN INJECTION PEN [Suspect]
     Route: 058
  3. ASASANTIN                          /00580301/ [Concomitant]
  4. COVERSYL                           /00790701/ [Concomitant]
  5. SIMVAR [Concomitant]
  6. FORMET [Concomitant]
  7. MINIDIAB [Concomitant]
  8. METOHEXAL                          /00376902/ [Concomitant]
  9. PROBITOR                           /00515002/ [Concomitant]

REACTIONS (1)
  - CEREBROVASCULAR ACCIDENT [None]
